FAERS Safety Report 24124659 (Version 2)
Quarter: 2025Q2

REPORT INFORMATION
  Report Type: Spontaneous
  Country: RO (occurrence: RO)
  Receive Date: 20240723
  Receipt Date: 20250628
  Transmission Date: 20250716
  Serious: Yes (Life-Threatening, Hospitalization, Other)
  Sender: AUROBINDO
  Company Number: RO-EGIS-HUN-2024-0580

PATIENT
  Age: 31 Year
  Sex: Female

DRUGS (1)
  1. OLANZAPINE [Suspect]
     Active Substance: OLANZAPINE
     Indication: Product used for unknown indication
     Dosage: 30 DOSAGE FORM, ONCE A DAY, 1 TOTAL
     Route: 048

REACTIONS (9)
  - Overdose [Recovered/Resolved]
  - Myopathy toxic [Unknown]
  - Rhabdomyolysis [Recovered/Resolved]
  - Lethargy [Recovered/Resolved]
  - Oedema peripheral [Recovered/Resolved]
  - Hyperchromasia [Recovered/Resolved]
  - Decubitus ulcer [Recovered/Resolved]
  - Hypersthenuria [Recovered/Resolved]
  - Blood creatine phosphokinase increased [Recovered/Resolved]
